FAERS Safety Report 9301901 (Version 1)
Quarter: 2013Q2

REPORT INFORMATION
  Report Type: Spontaneous
  Country: US (occurrence: US)
  Receive Date: 20130521
  Receipt Date: 20130521
  Transmission Date: 20140414
  Serious: Yes (Hospitalization, Other)
  Sender: FDA-Public Use
  Company Number: US-TEVA-405410USA

PATIENT
  Age: 44 Year
  Sex: Female

DRUGS (1)
  1. COPAXONE [Suspect]
     Indication: MULTIPLE SCLEROSIS
     Dates: start: 20110717

REACTIONS (7)
  - Dyspnoea [Unknown]
  - Urinary tract infection [Unknown]
  - Paralysis [Unknown]
  - Asthenia [Unknown]
  - Gait disturbance [Unknown]
  - Chills [Unknown]
  - Headache [Unknown]
